FAERS Safety Report 5938594-7 (Version None)
Quarter: 2008Q4

REPORT INFORMATION
  Report Type: 
  Country: None (occurrence: None)
  Receive Date: 20081103
  Receipt Date: 20081023
  Transmission Date: 20090506
  Serious: Yes (Hospitalization)
  Sender: FDA-Public Use
  Company Number: JP-JNJFOC-20070304083

PATIENT
  Sex: Female
  Weight: 50 kg

DRUGS (23)
  1. REMICADE [Suspect]
     Route: 042
  2. REMICADE [Suspect]
     Route: 042
  3. REMICADE [Suspect]
     Route: 042
  4. REMICADE [Suspect]
     Route: 042
  5. REMICADE [Suspect]
     Route: 042
  6. REMICADE [Suspect]
     Route: 042
  7. REMICADE [Suspect]
     Route: 042
  8. REMICADE [Suspect]
     Route: 042
  9. REMICADE [Suspect]
     Dosage: 8 INFUSIONS ON UNKNOWN DATES.
     Route: 042
  10. REMICADE [Suspect]
     Route: 042
  11. REMICADE [Suspect]
     Route: 042
  12. REMICADE [Suspect]
     Route: 042
  13. REMICADE [Suspect]
     Indication: RHEUMATOID ARTHRITIS
     Route: 042
  14. COTRIM [Suspect]
     Indication: DRUG USE FOR UNKNOWN INDICATION
  15. RHEUMATREX [Concomitant]
     Route: 048
  16. RHEUMATREX [Concomitant]
     Route: 048
  17. RHEUMATREX [Concomitant]
     Indication: RHEUMATOID ARTHRITIS
     Route: 048
  18. FOLIAMIN [Concomitant]
     Route: 048
  19. LEVOTHYROXINE SODIUM [Concomitant]
     Indication: AUTOIMMUNE THYROIDITIS
     Route: 048
  20. BACCIDAL [Concomitant]
     Indication: DRUG USE FOR UNKNOWN INDICATION
     Route: 048
  21. MICONAZOLE NITRATE [Concomitant]
     Route: 042
  22. SOLU-MEDROL [Concomitant]
     Route: 042
  23. FUNGIZONE [Concomitant]
     Route: 042

REACTIONS (2)
  - PNEUMOCYSTIS JIROVECI PNEUMONIA [None]
  - RENAL FAILURE ACUTE [None]
